FAERS Safety Report 15117202 (Version 1)
Quarter: 2018Q3

REPORT INFORMATION
  Report Type: Spontaneous
  Country: US (occurrence: US)
  Receive Date: 20180706
  Receipt Date: 20180706
  Transmission Date: 20181010
  Serious: No
  Sender: FDA-Public Use
  Company Number: US-PURDUE-USA-2018-0143486

PATIENT
  Age: 50 Year
  Sex: Male

DRUGS (3)
  1. DRONABINOL CAPSULES [Suspect]
     Active Substance: DRONABINOL
     Indication: APPETITE DISORDER
     Dosage: 10 UNK, UNK
     Route: 048
     Dates: start: 20180619
  2. DRONABINOL CAPSULES [Suspect]
     Active Substance: DRONABINOL
     Indication: NAUSEA
     Dosage: 10 MG, BID
     Route: 048
     Dates: start: 20180426
  3. DRONABINOL CAPSULES [Suspect]
     Active Substance: DRONABINOL
     Dosage: 10 MG, BID
     Route: 048

REACTIONS (7)
  - Malaise [Unknown]
  - Diarrhoea [Not Recovered/Not Resolved]
  - Decreased appetite [Not Recovered/Not Resolved]
  - Eructation [Unknown]
  - Product taste abnormal [Unknown]
  - Abdominal discomfort [Unknown]
  - Product odour abnormal [Unknown]

NARRATIVE: CASE EVENT DATE: 201803
